FAERS Safety Report 17237429 (Version 2)
Quarter: 2020Q1

REPORT INFORMATION
  Report Type: Spontaneous
  Country: US (occurrence: US)
  Receive Date: 20200106
  Receipt Date: 20200122
  Transmission Date: 20200409
  Serious: Yes (Death, Hospitalization)
  Sender: FDA-Public Use
  Company Number: US-SILVERGATE PHARMACEUTICALS, INC.-2019SIL00065

PATIENT
  Weight: 35 kg

DRUGS (1)
  1. EPANED [Suspect]
     Active Substance: ENALAPRIL MALEATE
     Indication: CARDIAC DYSFUNCTION
     Dosage: 2.5-7.5 MG 2X/DAY
     Dates: start: 20180601

REACTIONS (1)
  - Leukaemia recurrent [Fatal]

NARRATIVE: CASE EVENT DATE: 2019
